FAERS Safety Report 12311526 (Version 4)
Quarter: 2016Q3

REPORT INFORMATION
  Report Type: Spontaneous
  Country: JP (occurrence: JP)
  Receive Date: 20160427
  Receipt Date: 20160818
  Transmission Date: 20161109
  Serious: Yes (Other)
  Sender: FDA-Public Use
  Company Number: JP-ELI_LILLY_AND_COMPANY-JP201604008503

PATIENT
  Age: 57 Year
  Sex: Female
  Weight: 46 kg

DRUGS (6)
  1. FLUOROURACIL. [Concomitant]
     Active Substance: FLUOROURACIL
     Dosage: 380 MG, EVERY 2 WEEKS
     Route: 040
     Dates: start: 20151204
  2. CALCIUM FOLINATE [Concomitant]
     Active Substance: LEUCOVORIN CALCIUM
     Indication: COLON CANCER
     Dosage: UNK
  3. ERBITUX [Suspect]
     Active Substance: CETUXIMAB
     Dosage: 650 MG, EVERY 2 WEEKS
     Route: 042
     Dates: start: 20151221, end: 20160413
  4. ERBITUX [Suspect]
     Active Substance: CETUXIMAB
     Indication: COLON CANCER
     Dosage: 750 MG, EVERY 2 WEEKS
     Route: 042
     Dates: start: 20151002
  5. FLUOROURACIL. [Concomitant]
     Active Substance: FLUOROURACIL
     Indication: COLON CANCER
     Dosage: 450 MG, EVERY 2 WEEKS
     Route: 040
     Dates: start: 20151002
  6. IRINOTECAN [Concomitant]
     Active Substance: IRINOTECAN
     Indication: COLON CANCER
     Dosage: 180 MG, EVERY 2 WEEKS
     Route: 042
     Dates: start: 20151002

REACTIONS (5)
  - Skin disorder [Unknown]
  - Bone marrow failure [Unknown]
  - Osteoporosis [Unknown]
  - Off label use [Unknown]
  - Spinal compression fracture [Recovered/Resolved]

NARRATIVE: CASE EVENT DATE: 20151231
